FAERS Safety Report 19938189 (Version 1)
Quarter: 2021Q4

REPORT INFORMATION
  Report Type: Spontaneous
  Country: US (occurrence: US)
  Receive Date: 20211011
  Receipt Date: 20211011
  Transmission Date: 20220303
  Serious: Yes (Other)
  Sender: FDA-Public Use
  Company Number: US-AUROBINDO-AUR-APL-2021-001732

PATIENT
  Age: 71 Year
  Sex: Female
  Weight: 68.95 kg

DRUGS (2)
  1. OMEPRAZOLE [Suspect]
     Active Substance: OMEPRAZOLE
     Indication: Gastrooesophageal reflux disease
     Dosage: 1 DOSAGE FORM (01 CAPSULE)
     Route: 065
     Dates: start: 20201208, end: 20201209
  2. ASPIRIN [Concomitant]
     Active Substance: ASPIRIN
     Indication: Drug hypersensitivity
     Dosage: UNK
     Route: 060

REACTIONS (4)
  - Angina pectoris [Recovered/Resolved]
  - Chest discomfort [Recovered/Resolved]
  - Oesophageal pain [Recovered/Resolved]
  - Weight decreased [Recovered/Resolved]

NARRATIVE: CASE EVENT DATE: 20201208
